FAERS Safety Report 17892912 (Version 1)
Quarter: 2020Q2

REPORT INFORMATION
  Report Type: Spontaneous
  Country: US (occurrence: US)
  Receive Date: 20200613
  Receipt Date: 20200613
  Transmission Date: 20200714
  Serious: Yes (Other)
  Sender: FDA-Public Use
  Company Number: US-TEVA-2020-US-1247798

PATIENT

DRUGS (1)
  1. VALSARTAN. [Suspect]
     Active Substance: VALSARTAN
     Route: 065

REACTIONS (5)
  - Prostate cancer [Unknown]
  - Gastric cancer [Unknown]
  - Bone cancer [Unknown]
  - Hepatic cancer [Unknown]
  - Bile duct cancer [Unknown]
